FAERS Safety Report 12304433 (Version 1)
Quarter: 2016Q2

REPORT INFORMATION
  Report Type: Spontaneous
  Country: US (occurrence: None)
  Receive Date: 20160425
  Receipt Date: 20160425
  Transmission Date: 20160815
  Serious: Yes (Hospitalization)
  Sender: FDA-Public Use
  Company Number: None

PATIENT
  Age: 87 Year
  Sex: Male

DRUGS (1)
  1. LINEZOLID. [Suspect]
     Active Substance: LINEZOLID
     Indication: SURGERY
     Route: 048
     Dates: start: 20160119, end: 20160215

REACTIONS (2)
  - Anaemia [None]
  - Haematuria [None]

NARRATIVE: CASE EVENT DATE: 20160329
